FAERS Safety Report 7287946-4 (Version None)
Quarter: 2011Q1

REPORT INFORMATION
  Report Type: 
  Country: None (occurrence: None)
  Receive Date: 20110211
  Receipt Date: 20110209
  Transmission Date: 20110831
  Serious: Yes (Other)
  Sender: FDA-Public Use
  Company Number: US-PERRIGO-11US000515

PATIENT
  Sex: Female
  Weight: 98.866 kg

DRUGS (7)
  1. ACETAMINOPHEN [Suspect]
     Indication: HEADACHE
     Dosage: 1000MG, ONCE OR TWICE A DAY, AS NEEDED
     Route: 048
     Dates: start: 20100101, end: 20110117
  2. GLYBURIDE [Concomitant]
     Indication: DIABETES MELLITUS
     Dosage: 1 TABLET, DAILY
     Route: 048
     Dates: start: 20060101
  3. TOPROL-XL [Concomitant]
     Indication: CARDIAC DISORDER
     Dosage: 1 TABLET, DAILY
     Route: 048
     Dates: start: 20070101
  4. ACETAMINOPHEN [Suspect]
     Indication: PAIN
  5. ANTIHYPERTENSIVES [Concomitant]
     Indication: HYPERTENSION
     Dosage: 1 TABLET, DAILY
     Route: 048
     Dates: start: 20080101
  6. COUMADIN [Suspect]
     Indication: CARDIAC PACEMAKER INSERTION
     Dosage: AS DIRECTED
     Route: 048
     Dates: start: 20040101, end: 20110114
  7. CRESTOR [Concomitant]
     Indication: BLOOD CHOLESTEROL INCREASED
     Dosage: 1 TABLET, DAILY
     Route: 048
     Dates: start: 20080101

REACTIONS (5)
  - DRUG INTERACTION [None]
  - INCORRECT DRUG ADMINISTRATION DURATION [None]
  - BLOOD DISORDER [None]
  - CARDIAC STRESS TEST ABNORMAL [None]
  - ANTICOAGULATION DRUG LEVEL ABOVE THERAPEUTIC [None]
